FAERS Safety Report 16204553 (Version 1)
Quarter: 2019Q2

REPORT INFORMATION
  Report Type: Spontaneous
  Country: BR (occurrence: BR)
  Receive Date: 20190416
  Receipt Date: 20190416
  Transmission Date: 20190711
  Serious: Yes (Other)
  Sender: FDA-Public Use
  Company Number: BR-PFIZER INC-2017044077

PATIENT
  Age: 79 Year
  Sex: Female

DRUGS (4)
  1. NOVALGINA [Concomitant]
     Active Substance: METAMIZOLE SODIUM
     Indication: PAIN
     Dosage: UNK
  2. DIPROSPAN [BETAMETHASONE DIPROPIONATE;BETAMETHASONE SODIUM PHOSPHATE] [Concomitant]
     Indication: PAIN
     Dosage: UNK
  3. DAFLON [BIOFLAVONOIDS;DIOSMIN;HESPERIDIN] [Concomitant]
     Indication: CARDIOVASCULAR DISORDER
     Dosage: UNK
  4. ALDAZIDA [Suspect]
     Active Substance: HYDROCHLOROTHIAZIDE\SPIRONOLACTONE
     Indication: HYPERTENSION
     Dosage: 50 MG, 1X/DAY (50MG IN THE MORNING PER DAY)
     Dates: start: 1979

REACTIONS (1)
  - Arrhythmia [Not Recovered/Not Resolved]
